FAERS Safety Report 18850486 (Version 2)
Quarter: 2021Q1

REPORT INFORMATION
  Report Type: Report from Study
  Country: BR (occurrence: BR)
  Receive Date: 20210204
  Receipt Date: 20210317
  Transmission Date: 20210420
  Serious: Yes (Other)
  Sender: FDA-Public Use
  Company Number: NVSC2020BR191626

PATIENT
  Age: 53 Year
  Sex: Female

DRUGS (8)
  1. LETROZOLE. [Suspect]
     Active Substance: LETROZOLE
     Indication: NEOPLASM MALIGNANT
     Dosage: 1 DF, QD
     Route: 048
  2. LETROZOLE. [Suspect]
     Active Substance: LETROZOLE
     Dosage: UNK
     Route: 065
     Dates: start: 202004
  3. KISQALI [Suspect]
     Active Substance: RIBOCICLIB
     Indication: BREAST CANCER
     Dosage: 600 MG (3 DF) (EVERY DAY FOR 14 DAYS, EVERY 21 DAYS)
     Route: 048
     Dates: start: 20200514
  4. KISQALI [Suspect]
     Active Substance: RIBOCICLIB
     Dosage: UNK (USES FOR 21 DAYS AND 7 DAYS OF BREAK)
     Route: 065
     Dates: start: 20200514
  5. KISQALI [Suspect]
     Active Substance: RIBOCICLIB
     Dosage: UNK
     Route: 048
     Dates: start: 202005
  6. XGEVA [Concomitant]
     Active Substance: DENOSUMAB
     Indication: METASTASES TO BONE
     Dosage: UNK
     Route: 065
  7. KISQALI [Suspect]
     Active Substance: RIBOCICLIB
     Dosage: UNK (USES FOR 21 DAYS AND 7 DAYS OF BREAK)
     Route: 065
     Dates: start: 20200514
  8. KISQALI [Suspect]
     Active Substance: RIBOCICLIB
     Dosage: 3 DF (FOR 21 DAYS AND 7 DAYS OF BREAK)
     Route: 065
     Dates: start: 20200514

REACTIONS (51)
  - Fatigue [Unknown]
  - Pruritus [Recovering/Resolving]
  - Distractibility [Not Recovered/Not Resolved]
  - Neck pain [Unknown]
  - Headache [Recovering/Resolving]
  - Depressed mood [Unknown]
  - Insomnia [Recovering/Resolving]
  - Anaemia [Not Recovered/Not Resolved]
  - Ageusia [Unknown]
  - Hypotension [Unknown]
  - Fall [Unknown]
  - Pelvic pain [Not Recovered/Not Resolved]
  - Dry skin [Recovering/Resolving]
  - Nausea [Recovering/Resolving]
  - Pelvic discomfort [Unknown]
  - Dyspnoea exertional [Unknown]
  - Metastasis [Unknown]
  - Bone disorder [Unknown]
  - Hypersensitivity [Unknown]
  - Scratch [Unknown]
  - Hypokinesia [Unknown]
  - Bone swelling [Not Recovered/Not Resolved]
  - Iliac artery disease [Not Recovered/Not Resolved]
  - Off label use [Unknown]
  - Headache [Recovered/Resolved]
  - Lymphadenopathy [Unknown]
  - Stress [Unknown]
  - Feeling abnormal [Unknown]
  - Abnormal behaviour [Unknown]
  - Infection [Unknown]
  - Arthralgia [Unknown]
  - Sluggishness [Not Recovered/Not Resolved]
  - Malaise [Not Recovered/Not Resolved]
  - Swelling [Unknown]
  - Yellow skin [Unknown]
  - Burning sensation [Unknown]
  - Decreased appetite [Unknown]
  - Gait disturbance [Unknown]
  - Bone cancer [Unknown]
  - Pain [Not Recovered/Not Resolved]
  - Urticaria [Not Recovered/Not Resolved]
  - Swelling face [Not Recovered/Not Resolved]
  - Alopecia [Unknown]
  - Fear [Unknown]
  - Asthenia [Recovered/Resolved]
  - Memory impairment [Unknown]
  - Immune system disorder [Not Recovered/Not Resolved]
  - Onychoclasis [Unknown]
  - Anxiety [Unknown]
  - Unevaluable event [Unknown]
  - Dysstasia [Unknown]

NARRATIVE: CASE EVENT DATE: 2020
